FAERS Safety Report 8597797-6 (Version None)
Quarter: 2012Q3

REPORT INFORMATION
  Report Type: 
  Country: None (occurrence: None)
  Receive Date: 20120816
  Receipt Date: 20120813
  Transmission Date: 20120928
  Serious: Yes (Death)
  Sender: FDA-Public Use
  Company Number: PHHY2012BR070318

PATIENT
  Sex: Male
  Weight: 80 kg

DRUGS (3)
  1. PROLOPA [Concomitant]
     Indication: PARKINSON'S DISEASE
     Dosage: 1 DF, QD4SDO
     Route: 048
  2. MEMANTINE HYDROCHLORIDE [Concomitant]
     Dosage: 1 DF, DAILY
     Route: 048
  3. EXELON [Suspect]
     Indication: PARKINSON'S DISEASE
     Dosage: 4.6 MG, DAILY
     Route: 062

REACTIONS (2)
  - ACUTE PULMONARY OEDEMA [None]
  - BRONCHITIS [None]
